FAERS Safety Report 16861315 (Version 3)
Quarter: 2020Q3

REPORT INFORMATION
  Report Type: Other
  Country: US (occurrence: US)
  Receive Date: 20190927
  Receipt Date: 20200818
  Transmission Date: 20201102
  Serious: Yes (Other)
  Sender: FDA-Public Use
  Company Number: US-ROCHE-2418996

PATIENT
  Sex: Male
  Weight: 53.7 kg

DRUGS (1)
  1. HEMLIBRA [Suspect]
     Active Substance: EMICIZUMAB-KXWH
     Indication: FACTOR VIII DEFICIENCY
     Dosage: INJECT 300MG (2 ML) SUBCUTANEOUSLY EVERY MONTH
     Route: 058

REACTIONS (2)
  - Haematemesis [Unknown]
  - Wrong device used [Unknown]
